FAERS Safety Report 12217678 (Version 1)
Quarter: 2016Q1

REPORT INFORMATION
  Report Type: Spontaneous
  Country: US (occurrence: US)
  Receive Date: 20160329
  Receipt Date: 20160329
  Transmission Date: 20160526
  Serious: Yes (Hospitalization)
  Sender: FDA-Public Use
  Company Number: US-CELGENEUS-USA-2016035170

PATIENT
  Age: 66 Year
  Sex: Male
  Weight: 79.9 kg

DRUGS (8)
  1. SIMVASTATIN. [Concomitant]
     Active Substance: SIMVASTATIN
     Indication: HYPERCHOLESTEROLAEMIA
     Route: 065
  2. ALLOPURINOL. [Concomitant]
     Active Substance: ALLOPURINOL
     Indication: GOUT
     Route: 065
     Dates: start: 20150917
  3. POTASSIUM CHLORIDE. [Concomitant]
     Active Substance: POTASSIUM CHLORIDE
     Indication: SUPPLEMENTATION THERAPY
     Route: 065
     Dates: start: 20160307
  4. THALOMID [Suspect]
     Active Substance: THALIDOMIDE
     Indication: GASTROINTESTINAL HAEMORRHAGE
     Dosage: 150 MILLIGRAM
     Route: 048
     Dates: start: 20160126
  5. TAMSULOSIN [Concomitant]
     Active Substance: TAMSULOSIN
     Indication: BLADDER DISORDER
     Route: 065
     Dates: start: 20160307
  6. TRAZODONE [Concomitant]
     Active Substance: TRAZODONE HYDROCHLORIDE
     Indication: SLEEP DISORDER
     Route: 065
  7. WARFARIN [Concomitant]
     Active Substance: WARFARIN
     Indication: VENTRICULAR ASSIST DEVICE INSERTION
     Route: 065
     Dates: start: 20151127
  8. OMEPRAZOLE. [Concomitant]
     Active Substance: OMEPRAZOLE
     Indication: GASTROINTESTINAL HAEMORRHAGE
     Route: 065
     Dates: start: 20160307

REACTIONS (1)
  - Cardiac failure [Recovered/Resolved]

NARRATIVE: CASE EVENT DATE: 20160212
